FAERS Safety Report 6120311-1 (Version None)
Quarter: 2009Q1

REPORT INFORMATION
  Report Type: 
  Country: None (occurrence: None)
  Receive Date: 20090312
  Receipt Date: 20090305
  Transmission Date: 20090719
  Serious: Yes (Life-Threatening)
  Sender: FDA-Public Use
  Company Number: GXKR2009DE02774

PATIENT
  Age: 65 Year
  Sex: Male

DRUGS (1)
  1. SIMVAHEXAL (NGX) (SIMVASTATIN) FILM-COATED TABLET, 40MG [Suspect]
     Dosage: 40 MG, QD, ORAL
     Route: 048

REACTIONS (1)
  - RENAL FAILURE ACUTE [None]
